FAERS Safety Report 17514006 (Version 1)
Quarter: 2020Q1

REPORT INFORMATION
  Report Type: Spontaneous
  Country: IN (occurrence: IN)
  Receive Date: 20200306
  Receipt Date: 20200306
  Transmission Date: 20200409
  Serious: Yes (Death, Other)
  Sender: FDA-Public Use
  Company Number: NVSC2020IN063947

PATIENT
  Sex: Female

DRUGS (1)
  1. KRYXANA [Suspect]
     Active Substance: RIBOCICLIB
     Indication: MAXIMAL VOLUNTARY VENTILATION
     Dosage: 200 MG, QD
     Route: 065
     Dates: start: 20191011

REACTIONS (2)
  - Death [Fatal]
  - Disease progression [Fatal]
